FAERS Safety Report 18610179 (Version 1)
Quarter: 2020Q4

REPORT INFORMATION
  Report Type: Report from Study
  Country: None (occurrence: US)
  Receive Date: 20201214
  Receipt Date: 20201214
  Transmission Date: 20210114
  Serious: Yes (Other)
  Sender: FDA-Public Use
  Company Number: US-BIOVITRUM-2020US7305

PATIENT
  Age: 68 Year
  Sex: Female

DRUGS (1)
  1. KINERET [Suspect]
     Active Substance: ANAKINRA
     Indication: CRYSTAL ARTHROPATHY
     Route: 058
     Dates: start: 20201118

REACTIONS (3)
  - COVID-19 [Unknown]
  - Synovial cyst [Unknown]
  - Off label use [Unknown]

NARRATIVE: CASE EVENT DATE: 20201118
